FAERS Safety Report 4613960-0 (Version None)
Quarter: 2005Q1

REPORT INFORMATION
  Report Type: 
  Country: None (occurrence: None)
  Receive Date: 20050321
  Receipt Date: 20030923
  Transmission Date: 20050727
  Serious: Yes (Hospitalization, Other)
  Sender: FDA-Public Use
  Company Number: BE-JNJFOC-20040304149

PATIENT
  Age: 12 Year
  Sex: Female

DRUGS (5)
  1. CISAPRIDE [Suspect]
  2. CISAPRIDE [Suspect]
  3. LOSEC [Concomitant]
     Indication: DIARRHOEA
     Route: 049
  4. LOSEC [Concomitant]
     Route: 049
  5. NEXIUM [Concomitant]
     Route: 049

REACTIONS (4)
  - CONDITION AGGRAVATED [None]
  - DIARRHOEA [None]
  - DRUG INEFFECTIVE [None]
  - FUNDOPLICATION [None]
